FAERS Safety Report 8297695-1 (Version None)
Quarter: 2012Q2

REPORT INFORMATION
  Report Type: 
  Country: None (occurrence: None)
  Receive Date: 20120419
  Receipt Date: 20120410
  Transmission Date: 20120825
  Serious: No
  Sender: FDA-Public Use
  Company Number: US-US-EMD SERONO, INC.-7123443

PATIENT
  Sex: Male

DRUGS (2)
  1. REBIF [Suspect]
     Indication: PRODUCT USED FOR UNKNOWN INDICATION
     Route: 058
     Dates: start: 20111205
  2. UNSPECIFIED MEDICATION [Concomitant]
     Indication: HYPERTENSION
     Route: 048

REACTIONS (1)
  - NO ADVERSE EVENT [None]
